FAERS Safety Report 8909909 (Version 1)
Quarter: 2012Q4

REPORT INFORMATION
  Report Type: 
  Country: US (occurrence: US)
  Receive Date: 20121115
  Receipt Date: 20121115
  Transmission Date: 20130627
  Serious: No
  Sender: FDA-Public Use
  Company Number: US-PFIZER INC-2012284136

PATIENT
  Age: 82 Year
  Sex: Male
  Weight: 72.56 kg

DRUGS (2)
  1. TIKOSYN [Suspect]
     Indication: ATRIAL FIBRILLATION
     Dosage: 250 mg, 2x/day
     Dates: start: 201208
  2. METOPROLOL [Concomitant]
     Indication: HEART RATE ABNORMAL
     Dosage: 25 mg, 2x/day

REACTIONS (2)
  - Chromaturia [Not Recovered/Not Resolved]
  - Faeces discoloured [Not Recovered/Not Resolved]
